FAERS Safety Report 9879724 (Version 1)
Quarter: 2014Q1

REPORT INFORMATION
  Report Type: Spontaneous
  Country: US (occurrence: US)
  Receive Date: 20140206
  Receipt Date: 20140206
  Transmission Date: 20141002
  Serious: Yes (Other)
  Sender: FDA-Public Use
  Company Number: PHEH2014US002132

PATIENT
  Sex: Female

DRUGS (10)
  1. MYFORTIC [Suspect]
     Dosage: 8 DF, BID
  2. PROGRAF [Concomitant]
     Dosage: UNK
  3. ASPIRIN [Concomitant]
     Dosage: 325 MG, QD
  4. AMLODIPINE [Concomitant]
     Dosage: 10 MG, QD
  5. LEXAPRO [Concomitant]
     Dosage: 20 MG, QD
  6. LIPITOR [Concomitant]
     Dosage: 20 MG, QD
  7. PANTOPRAZOLE [Concomitant]
     Indication: GASTRIC DISORDER
     Dosage: 40 MG, QD
  8. CLONIDINE [Concomitant]
     Dosage: 1 MG, TID
  9. HYDRALAZINE [Concomitant]
     Dosage: 50 MG, TID
  10. VITAMIN D2 [Concomitant]
     Dosage: 125 MG, 1XMONTH

REACTIONS (8)
  - Hearing impaired [Unknown]
  - Glaucoma [Unknown]
  - Visual acuity reduced [Unknown]
  - Pain in extremity [Unknown]
  - Back pain [Unknown]
  - Osteoporosis [Unknown]
  - Pruritus [Unknown]
  - Blood pressure increased [Unknown]
